FAERS Safety Report 14710027 (Version 3)
Quarter: 2018Q3

REPORT INFORMATION
  Report Type: Spontaneous
  Country: US (occurrence: US)
  Receive Date: 20180403
  Receipt Date: 20180726
  Transmission Date: 20181010
  Serious: Yes (Disabling, Other)
  Sender: FDA-Public Use
  Company Number: US-REGENERON PHARMACEUTICALS, INC.-2018-19547

PATIENT

DRUGS (2)
  1. EYLEA [Suspect]
     Active Substance: AFLIBERCEPT
     Indication: MACULAR OEDEMA
     Dosage: 2 MG, RIGHT EYE, EVERY 4 WEEKS
     Route: 031
     Dates: start: 20180320, end: 20180320
  2. EYLEA [Suspect]
     Active Substance: AFLIBERCEPT
     Indication: RADIATION RETINOPATHY
     Dosage: 2 MG, RIGHT EYE FOR EVERY 4 WEEKS
     Route: 031
     Dates: start: 20160823

REACTIONS (3)
  - Off label use [Recovered/Resolved]
  - Blindness transient [Recovered/Resolved]
  - Non-infectious endophthalmitis [Recovered/Resolved]

NARRATIVE: CASE EVENT DATE: 20160823
